FAERS Safety Report 5535117-1 (Version None)
Quarter: 2007Q4

REPORT INFORMATION
  Report Type: 
  Country: None (occurrence: None)
  Receive Date: 20071203
  Receipt Date: 20071128
  Transmission Date: 20080405
  Serious: Yes (Hospitalization)
  Sender: FDA-Public Use
  Company Number: 2007SP023111

PATIENT
  Age: 47 Year
  Sex: Male
  Weight: 105 kg

DRUGS (6)
  1. VIRAFERONPEG (PEGINTEFERON ALFA-2B) (PEGINTERFERON ALFA-2B) [Suspect]
     Indication: HEPATITIS C
     Dosage: 150 MCG; SC
     Route: 058
     Dates: start: 20070917, end: 20071111
  2. REBETOL [Suspect]
     Indication: HEPATITIS C
     Dosage: 1200 MG; PO
     Route: 048
     Dates: start: 20070917, end: 20071111
  3. OGAST [Concomitant]
  4. MEPRONIZINE [Concomitant]
  5. STRESAM [Concomitant]
  6. EFFERALGAN [Concomitant]

REACTIONS (2)
  - DEEP VEIN THROMBOSIS [None]
  - PULMONARY EMBOLISM [None]
